FAERS Safety Report 4413909-X (Version None)
Quarter: 2004Q3

REPORT INFORMATION
  Report Type: 
  Country: None (occurrence: None)
  Receive Date: 20040803
  Receipt Date: 20040722
  Transmission Date: 20050211
  Serious: Yes (Hospitalization)
  Sender: FDA-Public Use
  Company Number: FR-BRISTOL-MYERS SQUIBB COMPANY-12648515

PATIENT
  Age: 69 Year
  Sex: Female

DRUGS (2)
  1. APROVEL TABS [Suspect]
     Indication: HYPERTENSION
     Route: 048
     Dates: start: 20040408, end: 20040603
  2. LESCOL [Suspect]
     Route: 048
     Dates: start: 20040507, end: 20040603

REACTIONS (2)
  - GASTROINTESTINAL DISORDER [None]
  - HEPATITIS [None]
